FAERS Safety Report 23349613 (Version 1)
Quarter: 2023Q4

REPORT INFORMATION
  Report Type: Spontaneous
  Country: US (occurrence: US)
  Receive Date: 20231229
  Receipt Date: 20231229
  Transmission Date: 20240109
  Serious: Yes (Other)
  Sender: FDA-Public Use
  Company Number: US-BRISTOL-MYERS SQUIBB COMPANY-2023-186658

PATIENT
  Age: 66 Year
  Sex: Female
  Weight: 84.26 kg

DRUGS (1)
  1. POMALYST [Suspect]
     Active Substance: POMALIDOMIDE
     Indication: Plasma cell myeloma
     Dosage: DAILY 1-21 DAYS THEN 7 DAYS OFF
     Route: 048
     Dates: start: 20210224

REACTIONS (1)
  - Drug ineffective [Unknown]
